FAERS Safety Report 9008565 (Version 1)
Quarter: 2013Q1

REPORT INFORMATION
  Report Type: Spontaneous
  Country: US (occurrence: US)
  Receive Date: 20130111
  Receipt Date: 20130111
  Transmission Date: 20140127
  Serious: No
  Sender: FDA-Public Use
  Company Number: US-PFIZER INC-2013007843

PATIENT
  Sex: Female

DRUGS (5)
  1. GEODON [Suspect]
     Dosage: 60 MG, UNK
  2. GEODON [Suspect]
     Dosage: 50 MG, UNK
  3. GEODON [Suspect]
     Dosage: 40 MG, UNK
  4. GEODON [Suspect]
     Dosage: 30 MG, UNK
  5. GEODON [Suspect]
     Dosage: 20 MG, UNK

REACTIONS (5)
  - Confusional state [Unknown]
  - Thinking abnormal [Unknown]
  - Agitation [Unknown]
  - Dizziness [Unknown]
  - Somnolence [Unknown]
